FAERS Safety Report 7120017-6 (Version None)
Quarter: 2010Q4

REPORT INFORMATION
  Report Type: 
  Country: None (occurrence: None)
  Receive Date: 20101123
  Receipt Date: 20101116
  Transmission Date: 20110411
  Serious: Yes (Hospitalization)
  Sender: FDA-Public Use
  Company Number: GB-PFIZER INC-2010150182

PATIENT
  Age: 86 Week
  Sex: Female

DRUGS (5)
  1. PREGABALIN [Suspect]
     Indication: PAIN
     Dosage: 25 MG, 2X/DAY
     Route: 048
     Dates: start: 20101022, end: 20101101
  2. MACROGOL [Concomitant]
     Indication: CONSTIPATION
     Dosage: 1 DF, 2X/DAY
     Route: 048
     Dates: start: 20101030
  3. PARACETAMOL [Concomitant]
     Indication: ARTHRALGIA
     Dosage: 1 G, 3X/DAY
     Route: 048
     Dates: start: 20101025
  4. SALBUTAMOL [Concomitant]
     Indication: DYSPNOEA
     Dosage: 200 UG, 3X/DAY
     Route: 055
     Dates: start: 20101025
  5. TRAMADOL [Concomitant]
     Indication: ARTHRALGIA
     Dosage: 50 MG, 4X/DAY
     Route: 048
     Dates: start: 20101025

REACTIONS (1)
  - HYPONATRAEMIA [None]
